FAERS Safety Report 19117393 (Version 1)
Quarter: 2021Q2

REPORT INFORMATION
  Report Type: Report from Study
  Country: None (occurrence: US)
  Receive Date: 20210409
  Receipt Date: 20210409
  Transmission Date: 20210717
  Serious: Yes (Other)
  Sender: FDA-Public Use
  Company Number: US-ABBVIE-21K-163-3846489-00

PATIENT
  Age: 81 Year
  Sex: Male

DRUGS (2)
  1. HUMIRA [Suspect]
     Active Substance: ADALIMUMAB
     Indication: CROHN^S DISEASE
     Route: 058
  2. HUMIRA [Suspect]
     Active Substance: ADALIMUMAB
     Indication: CROHN^S DISEASE
     Dosage: DAY 1
     Route: 058
     Dates: start: 20210320, end: 20210320

REACTIONS (9)
  - Fluid retention [Unknown]
  - Infection [Unknown]
  - Diarrhoea [Recovering/Resolving]
  - Somnolence [Unknown]
  - Injection site pain [Unknown]
  - Fracture [Recovering/Resolving]
  - Blood potassium decreased [Recovered/Resolved]
  - Weight decreased [Unknown]
  - Frequent bowel movements [Recovering/Resolving]

NARRATIVE: CASE EVENT DATE: 202103
